FAERS Safety Report 9835662 (Version 1)
Quarter: 2014Q1

REPORT INFORMATION
  Report Type: Spontaneous
  Country: JP (occurrence: JP)
  Receive Date: 20140122
  Receipt Date: 20140122
  Transmission Date: 20141002
  Serious: Yes (Hospitalization, Other)
  Sender: FDA-Public Use
  Company Number: JP-MERCK-1401JPN008256

PATIENT
  Age: 25 Year
  Sex: Female

DRUGS (6)
  1. VALPROATE SODIUM [Suspect]
     Indication: EPILEPSY
     Dosage: 1000MG/DAY
     Route: 048
  2. HYDROCORTONE [Interacting]
     Indication: ADRENAL INSUFFICIENCY
     Dosage: 30MG/DAY
     Route: 048
  3. HYDROCORTISONE [Interacting]
     Indication: ADRENAL INSUFFICIENCY
     Dosage: UNK
     Route: 041
  4. FLUDROCORTISONE ACETATE [Interacting]
     Indication: ADRENAL INSUFFICIENCY
     Dosage: 0.05MG/DAY
     Route: 048
  5. CARBAMAZEPINE [Interacting]
     Indication: EPILEPSY
     Dosage: 300MG/DAY
     Route: 048
  6. LAMOTRIGINE [Interacting]
     Indication: EPILEPSY
     Dosage: 350MG/DAY
     Route: 048

REACTIONS (1)
  - Hyponatraemia [Unknown]
